FAERS Safety Report 10691008 (Version 5)
Quarter: 2016Q4

REPORT INFORMATION
  Report Type: Spontaneous
  Country: US (occurrence: US)
  Receive Date: 20150105
  Receipt Date: 20161205
  Transmission Date: 20170206
  Serious: No
  Sender: FDA-Public Use
  Company Number: US-PFIZER INC-2014362008

PATIENT
  Age: 13 Year
  Sex: Male

DRUGS (3)
  1. VITAMIN D [Concomitant]
     Active Substance: CHOLECALCIFEROL
     Dosage: UNK
  2. GENOTROPIN [Suspect]
     Active Substance: SOMATROPIN
     Indication: DWARFISM
     Dosage: 2 MG, DAILY, 6X/WEEK
     Route: 058
     Dates: start: 2014
  3. GENOTROPIN [Suspect]
     Active Substance: SOMATROPIN
     Indication: GROWTH HORMONE DEFICIENCY
     Dosage: 2 MG, DAILY, 6X/WEEK
     Route: 058

REACTIONS (4)
  - Headache [Unknown]
  - Anxiety [Unknown]
  - Somnolence [Unknown]
  - Depressed mood [Unknown]

NARRATIVE: CASE EVENT DATE: 201609
